FAERS Safety Report 6540108-8 (Version None)
Quarter: 2010Q1

REPORT INFORMATION
  Report Type: 
  Country: None (occurrence: None)
  Receive Date: 20100112
  Receipt Date: 20091231
  Transmission Date: 20100710
  Serious: Yes (Hospitalization)
  Sender: FDA-Public Use
  Company Number: 2009AP005219

PATIENT
  Age: 53 Year
  Sex: Female

DRUGS (6)
  1. PAROXETINE HCL [Suspect]
     Dosage: 20 MG;QD
  2. MOCLOBEMIDE (MOCLOBEMIDE) [Suspect]
     Dosage: 150 MG;TID
  3. SELEGILINE HYDROCHLORIDE [Suspect]
     Dosage: 5 MG;BID
  4. MIDODRINE HYDROCHLORIDE [Concomitant]
  5. BIPERIDEN HYDROCHLORIDE TAB [Concomitant]
  6. GINKGO BILOBA (GINKGO BILOBA) [Concomitant]

REACTIONS (12)
  - ATAXIA [None]
  - BLOOD GLUCOSE INCREASED [None]
  - BLOOD PRESSURE INCREASED [None]
  - CEREBRAL ATROPHY [None]
  - DRUG INTERACTION [None]
  - EXTENSOR PLANTAR RESPONSE [None]
  - MUSCLE RIGIDITY [None]
  - MUSCULOSKELETAL STIFFNESS [None]
  - MYDRIASIS [None]
  - SEROTONIN SYNDROME [None]
  - TREMOR [None]
  - URINARY TRACT INFECTION [None]
